FAERS Safety Report 24180472 (Version 1)
Quarter: 2024Q3

REPORT INFORMATION
  Report Type: Spontaneous
  Country: SE (occurrence: SE)
  Receive Date: 20240806
  Receipt Date: 20240806
  Transmission Date: 20241016
  Serious: Yes (Death)
  Sender: MYLAN
  Company Number: SE-NORDICDR-2024-AER-SE-00086

PATIENT
  Age: 22 Year
  Sex: Male

DRUGS (3)
  1. LOPERAMIDE [Suspect]
     Active Substance: LOPERAMIDE
     Indication: Product used for unknown indication
     Dosage: NOT REPORTED
     Route: 065
  2. PREGABALIN [Concomitant]
     Active Substance: PREGABALIN
     Dosage: NOT REPORTED
     Route: 065
  3. PROPIOMAZINE [Concomitant]
     Active Substance: PROPIOMAZINE
     Dosage: NOT REPORTED
     Route: 065

REACTIONS (2)
  - Death [Fatal]
  - Accidental overdose [Fatal]
